FAERS Safety Report 14732908 (Version 3)
Quarter: 2018Q2

REPORT INFORMATION
  Report Type: Spontaneous
  Country: US (occurrence: US)
  Receive Date: 20180409
  Receipt Date: 20180524
  Transmission Date: 20180711
  Serious: No
  Sender: FDA-Public Use
  Company Number: US-PFIZER INC-2018141467

PATIENT
  Age: 65 Year
  Sex: Female
  Weight: 86 kg

DRUGS (2)
  1. PREMARIN [Suspect]
     Active Substance: ESTROGENS, CONJUGATED
     Indication: DYSPAREUNIA
     Dosage: UNK, CYCLIC (3 TIMES A WEEK FOR THE FIRST WEEK, 2 TIMES A WEEK FOR WEEKS 2-4, AND THEN EVERY 5 DAYS)
     Route: 067
     Dates: start: 201703, end: 201803
  2. SYNTHROID [Concomitant]
     Active Substance: LEVOTHYROXINE SODIUM
     Indication: THYROID DISORDER
     Dosage: UNK
     Dates: start: 1989

REACTIONS (5)
  - Wrong technique in product usage process [Unknown]
  - Incorrect dose administered [Unknown]
  - Vulvovaginal burning sensation [Recovered/Resolved]
  - Drug effect incomplete [Unknown]
  - Product quality issue [Unknown]

NARRATIVE: CASE EVENT DATE: 201703
